FAERS Safety Report 6867456-6 (Version None)
Quarter: 2010Q3

REPORT INFORMATION
  Report Type: 
  Country: None (occurrence: None)
  Receive Date: 20100722
  Receipt Date: 20100712
  Transmission Date: 20110219
  Serious: Yes (Other)
  Sender: FDA-Public Use
  Company Number: CHPA2010US11449

PATIENT
  Age: 40 Year
  Sex: Male
  Weight: 92.971 kg

DRUGS (3)
  1. LAMISIL AT [Suspect]
     Indication: TINEA INFECTION
     Dosage: AS DIRECTED ON THE LABEL
     Route: 061
     Dates: start: 20100701, end: 20100701
  2. LAMISIL AT [Suspect]
     Indication: TINEA PEDIS
  3. LAMISIL AT [Suspect]
     Indication: TINEA CRURIS

REACTIONS (7)
  - APPLICATION SITE ERYTHEMA [None]
  - BURNS FIRST DEGREE [None]
  - DRUG ADMINISTERED AT INAPPROPRIATE SITE [None]
  - DRY SKIN [None]
  - OFF LABEL USE [None]
  - SKIN EXFOLIATION [None]
  - WRONG TECHNIQUE IN DRUG USAGE PROCESS [None]
